FAERS Safety Report 21992984 (Version 3)
Quarter: 2023Q1

REPORT INFORMATION
  Report Type: Report from Study
  Country: US (occurrence: US)
  Receive Date: 20230215
  Receipt Date: 20230329
  Transmission Date: 20230418
  Serious: Yes (Other)
  Sender: FDA-Public Use
  Company Number: US-ABBVIE-22K-163-4378002-00

PATIENT
  Age: 67 Year
  Sex: Male

DRUGS (2)
  1. HUMIRA [Suspect]
     Active Substance: ADALIMUMAB
     Indication: Product used for unknown indication
     Route: 058
  2. SKYRIZI [Suspect]
     Active Substance: RISANKIZUMAB-RZAA
     Indication: Psoriasis
     Route: 058
     Dates: start: 20210414

REACTIONS (14)
  - Lung carcinoma cell type unspecified recurrent [Unknown]
  - Condition aggravated [Unknown]
  - Chronic obstructive pulmonary disease [Unknown]
  - Device issue [Not Recovered/Not Resolved]
  - Lung disorder [Unknown]
  - Injection site haemorrhage [Unknown]
  - Nephropathy [Not Recovered/Not Resolved]
  - Cardiac disorder [Unknown]
  - Tinea pedis [Unknown]
  - Pain [Unknown]
  - Genital rash [Not Recovered/Not Resolved]
  - Pain [Unknown]
  - Cardiac failure [Not Recovered/Not Resolved]
  - Cough [Unknown]

NARRATIVE: CASE EVENT DATE: 20220401
